FAERS Safety Report 9233787 (Version 1)
Quarter: 2013Q2

REPORT INFORMATION
  Report Type: Spontaneous
  Country: US (occurrence: US)
  Receive Date: 20130416
  Receipt Date: 20130416
  Transmission Date: 20140414
  Serious: Yes (Other)
  Sender: FDA-Public Use
  Company Number: US-PFIZER INC-2013114463

PATIENT
  Age: 50 Year
  Sex: Female

DRUGS (2)
  1. SUTENT [Suspect]
     Indication: PANCREATIC CARCINOMA
     Dosage: UNK
     Dates: start: 2013, end: 201303
  2. TEMODAR [Concomitant]
     Indication: PANCREATIC CARCINOMA
     Dosage: UNK
     Dates: start: 2013, end: 2013

REACTIONS (4)
  - Myocardial infarction [Unknown]
  - Arterial thrombosis [Unknown]
  - Hypertension [Unknown]
  - Platelet count decreased [Unknown]
